FAERS Safety Report 7969979-5 (Version None)
Quarter: 2011Q4

REPORT INFORMATION
  Report Type: 
  Country: None (occurrence: None)
  Receive Date: 20111212
  Receipt Date: 20111130
  Transmission Date: 20120403
  Serious: Yes (Hospitalization, Other)
  Sender: FDA-Public Use
  Company Number: BR-US-EMD SERONO, INC.-7078939

PATIENT
  Sex: Female

DRUGS (4)
  1. UNSPECIFIED MEDICATION [Concomitant]
     Indication: PAIN
  2. UNSPECIFIED MEDICATION [Concomitant]
     Indication: ABDOMINAL PAIN
  3. REBIF [Suspect]
     Indication: RELAPSING-REMITTING MULTIPLE SCLEROSIS
     Dates: start: 20100409
  4. DRAMIN [Concomitant]

REACTIONS (2)
  - ENDOMETRIAL DISORDER [None]
  - MULTIPLE SCLEROSIS RELAPSE [None]
